FAERS Safety Report 10432734 (Version 1)
Quarter: 2014Q3

REPORT INFORMATION
  Report Type: Spontaneous
  Country: US (occurrence: None)
  Receive Date: 20140904
  Receipt Date: 20140904
  Transmission Date: 20150326
  Serious: Yes (Life-Threatening, Hospitalization)
  Sender: FDA-Public Use
  Company Number: None

PATIENT
  Age: 63 Year
  Sex: Female
  Weight: 120.7 kg

DRUGS (23)
  1. XOPENEX [Concomitant]
     Active Substance: LEVALBUTEROL HYDROCHLORIDE
  2. ZOFRAN [Concomitant]
     Active Substance: ONDANSETRON HYDROCHLORIDE
  3. MIRALAX [Concomitant]
     Active Substance: POLYETHYLENE GLYCOL 3350
  4. DIGOXIN. [Concomitant]
     Active Substance: DIGOXIN
  5. PROTONIX [Concomitant]
     Active Substance: PANTOPRAZOLE SODIUM
  6. DEXTROSE. [Concomitant]
     Active Substance: DEXTROSE
  7. TRAMADOL [Concomitant]
     Active Substance: TRAMADOL
  8. NORMAL SALINE [Concomitant]
     Active Substance: SODIUM CHLORIDE
  9. HYDROXYETHYL CELLULOSE [Concomitant]
     Active Substance: HYDROXYETHYL CELLULOSE
  10. PROTONIX [Concomitant]
     Active Substance: PANTOPRAZOLE SODIUM
  11. SPIRIVA [Concomitant]
     Active Substance: TIOTROPIUM BROMIDE MONOHYDRATE
  12. FAMOTIDINE. [Concomitant]
     Active Substance: FAMOTIDINE
  13. NOVOLOG FLEXPEN SLIDING SCALE [Concomitant]
  14. LOPRESSOR [Concomitant]
     Active Substance: METOPROLOL TARTRATE
  15. PRADAXA [Suspect]
     Active Substance: DABIGATRAN ETEXILATE MESYLATE
     Indication: ATRIAL FIBRILLATION
     Route: 048
     Dates: start: 20140614, end: 20140619
  16. PRADAXA [Suspect]
     Active Substance: DABIGATRAN ETEXILATE MESYLATE
     Indication: CEREBROVASCULAR ACCIDENT PROPHYLAXIS
     Route: 048
     Dates: start: 20140614, end: 20140619
  17. COLACE [Concomitant]
     Active Substance: DOCUSATE SODIUM
  18. ADVAIR HFA [Concomitant]
     Active Substance: FLUTICASONE PROPIONATE\SALMETEROL XINAFOATE
  19. ATENOLOL. [Concomitant]
     Active Substance: ATENOLOL
  20. SINGULAIR [Concomitant]
     Active Substance: MONTELUKAST SODIUM
  21. ATENOLOL. [Concomitant]
     Active Substance: ATENOLOL
  22. ACETAMINOPHEN. [Concomitant]
     Active Substance: ACETAMINOPHEN
  23. LEVEMIR [Concomitant]
     Active Substance: INSULIN DETEMIR

REACTIONS (4)
  - Blood urine present [None]
  - Catheter site haemorrhage [None]
  - Rectal haemorrhage [None]
  - International normalised ratio increased [None]

NARRATIVE: CASE EVENT DATE: 20140621
